FAERS Safety Report 18942807 (Version 1)
Quarter: 2021Q1

REPORT INFORMATION
  Report Type: Spontaneous
  Country: CN (occurrence: CN)
  Receive Date: 20210225
  Receipt Date: 20210225
  Transmission Date: 20210420
  Serious: Yes (Other)
  Sender: FDA-Public Use
  Company Number: CN-BAXTER-2021BAX003742

PATIENT
  Age: 51 Year
  Sex: Female
  Weight: 60 kg

DRUGS (4)
  1. ENDOXAN [Suspect]
     Active Substance: CYCLOPHOSPHAMIDE
     Indication: BREAST CANCER FEMALE
     Dosage: DAY 1, 1 CYCLE OF CHEMOTHERAPY, CYCLOPHOSPHAMIDE 900 MG + 0.9% SODIUM CHLORIDE 100 ML
     Route: 041
     Dates: start: 20210130, end: 20210130
  2. 5% GLUCOSE  INJECTION [Suspect]
     Active Substance: DEXTROSE
     Indication: MEDICATION DILUTION
     Dosage: DAY 1, 1 CYCLE OF CHEMOTHERAPY, 5% GLUCOSE 100 ML + PIRARUBICIN HYDROCHLORIDE 90 MG
     Route: 041
     Dates: start: 20210130, end: 20210130
  3. 0.9% SODIUM CHLORIDE INJECTION [Suspect]
     Active Substance: SODIUM CHLORIDE
     Indication: MEDICATION DILUTION
     Dosage: DAY 1, 1 CYCLE OF CHEMOTHERAPY, 0.9% SODIUM CHLORIDE 100 ML + CYCLOPHOSPHAMIDE 900 MG
     Route: 041
     Dates: start: 20210130, end: 20210130
  4. PIRARUBICIN HYDROCHLORIDE [Suspect]
     Active Substance: PIRARUBICIN HYDROCHLORIDE
     Indication: BREAST CANCER FEMALE
     Dosage: DAY 1, 1 CYCLE OF CHEMOTHERAPY, PIRARUBICIN HYDROCHLORIDE 90 MG + 5% GLUCOSE 100 ML
     Route: 041
     Dates: start: 20210130, end: 20210130

REACTIONS (1)
  - Myelosuppression [Recovered/Resolved]

NARRATIVE: CASE EVENT DATE: 20210214
